FAERS Safety Report 25825250 (Version 2)
Quarter: 2025Q3

REPORT INFORMATION
  Report Type: Spontaneous
  Country: EU (occurrence: EU)
  Receive Date: 20250919
  Receipt Date: 20250926
  Transmission Date: 20251020
  Serious: Yes (Hospitalization, Other)
  Sender: ARGENX BVBA
  Company Number: EU-ARGENX-2025-ARGX-FR012568

PATIENT

DRUGS (4)
  1. EFGARTIGIMOD ALFA [Suspect]
     Active Substance: EFGARTIGIMOD ALFA
     Indication: Myasthenia gravis
     Route: 058
     Dates: start: 2025
  2. CORTICOSTEROID NOS [Concomitant]
     Active Substance: CORTICOSTEROID NOS
     Indication: Product used for unknown indication
     Dosage: 10 MG, DAILY
     Route: 065
  3. Imurel [Concomitant]
     Route: 065
  4. Imurel [Concomitant]
     Indication: Lymphopenia
     Route: 065

REACTIONS (6)
  - Ejection fraction decreased [Unknown]
  - Respiratory distress [Unknown]
  - Acute pulmonary oedema [Unknown]
  - Cardiac failure [Unknown]
  - Dilated cardiomyopathy [Unknown]
  - Therapy change [Unknown]

NARRATIVE: CASE EVENT DATE: 20250901
